FAERS Safety Report 8405732-6 (Version None)
Quarter: 2012Q2

REPORT INFORMATION
  Report Type: 
  Country: None (occurrence: None)
  Receive Date: 20120604
  Receipt Date: 20120523
  Transmission Date: 20120825
  Serious: Yes (Other)
  Sender: FDA-Public Use
  Company Number: GB-SP-2012-05498

PATIENT
  Age: 77 Year
  Sex: Male

DRUGS (5)
  1. METFORMIN HCL [Concomitant]
  2. OMEPRAZOLE [Concomitant]
  3. TICE BCG [Suspect]
     Indication: BLADDER CANCER
     Route: 043
     Dates: start: 20120501
  4. RAMIPRIL [Concomitant]
  5. TAMSULOSIN HCL [Concomitant]

REACTIONS (4)
  - PYREXIA [None]
  - BOVINE TUBERCULOSIS [None]
  - COUGH [None]
  - LETHARGY [None]
